FAERS Safety Report 7652820-8 (Version None)
Quarter: 2011Q3

REPORT INFORMATION
  Report Type: 
  Country: None (occurrence: None)
  Receive Date: 20110803
  Receipt Date: 20110729
  Transmission Date: 20111222
  Serious: Yes (Other)
  Sender: FDA-Public Use
  Company Number: US-BAYER-2011-067070

PATIENT
  Sex: Female

DRUGS (1)
  1. MIRENA [Suspect]
     Dosage: UNK UNK, ONCE
     Route: 015
     Dates: start: 20110202, end: 20110202

REACTIONS (6)
  - PROCEDURAL PAIN [None]
  - OVARIAN CYST [None]
  - POST PROCEDURAL HAEMORRHAGE [None]
  - POST PROCEDURAL SWELLING [None]
  - DEVICE DIFFICULT TO USE [None]
  - PROCEDURAL COMPLICATION [None]
